FAERS Safety Report 14453442 (Version 1)
Quarter: 2018Q1

REPORT INFORMATION
  Report Type: Spontaneous
  Country: IT (occurrence: IT)
  Receive Date: 20180129
  Receipt Date: 20180129
  Transmission Date: 20180509
  Serious: Yes (Hospitalization)
  Sender: FDA-Public Use
  Company Number: IT-SA-2018SA018132

PATIENT
  Age: 59 Year
  Sex: Male

DRUGS (13)
  1. LARGACTIL [Concomitant]
     Active Substance: CHLORPROMAZINE
     Route: 065
  2. CARVEDILOL. [Concomitant]
     Active Substance: CARVEDILOL
  3. MINIAS [Concomitant]
     Active Substance: LORMETAZEPAM
  4. AMLODIPINE [Concomitant]
     Active Substance: AMLODIPINE BESYLATE
  5. SERTRALINE [Concomitant]
     Active Substance: SERTRALINE HYDROCHLORIDE
  6. DIDROGYL [Concomitant]
     Active Substance: CALCIFEDIOL
     Route: 048
  7. LENTO-KALIUM [Concomitant]
     Active Substance: POTASSIUM CHLORIDE
  8. PLAVIX [Suspect]
     Active Substance: CLOPIDOGREL BISULFATE
     Indication: THROMBOSIS PROPHYLAXIS
     Route: 048
     Dates: start: 20170101, end: 20171012
  9. CARDIOASPIRIN [Suspect]
     Active Substance: ASPIRIN
     Indication: THROMBOSIS PROPHYLAXIS
     Route: 048
     Dates: start: 20170101, end: 20171012
  10. FLUXUM [Suspect]
     Active Substance: PARNAPARIN SODIUM
     Indication: THROMBOSIS PROPHYLAXIS
     Dosage: DOSAGE FORM WAS INJECTABLE SOLUTION IN PREFILLED SYRINGE
     Route: 058
     Dates: start: 20170101, end: 20171012
  11. PANTOPRAZOLE [Concomitant]
     Active Substance: PANTOPRAZOLE
  12. VALSARTAN. [Concomitant]
     Active Substance: VALSARTAN
     Route: 065
  13. TARGIN [Concomitant]
     Active Substance: NALOXONE HYDROCHLORIDE\OXYCODONE HYDROCHLORIDE

REACTIONS (3)
  - Aphasia [Unknown]
  - Cerebellar haemorrhage [Unknown]
  - Confusional state [Unknown]

NARRATIVE: CASE EVENT DATE: 20171012
